FAERS Safety Report 15390165 (Version 1)
Quarter: 2018Q3

REPORT INFORMATION
  Report Type: Spontaneous
  Country: US (occurrence: US)
  Receive Date: 20180917
  Receipt Date: 20180917
  Transmission Date: 20181010
  Serious: No
  Sender: FDA-Public Use
  Company Number: US-BAYER-2018-170224

PATIENT
  Age: 3 Year
  Sex: Female

DRUGS (1)
  1. MIRALAX [Suspect]
     Active Substance: POLYETHYLENE GLYCOL 3350
     Indication: CONSTIPATION
     Dosage: 1/4 CAP DAILY
     Dates: start: 20170601, end: 20170615

REACTIONS (6)
  - Insomnia [Recovering/Resolving]
  - Anger [Recovering/Resolving]
  - Aggression [Recovering/Resolving]
  - Drug administered to patient of inappropriate age [None]
  - Auditory disorder [Recovering/Resolving]
  - Feeling abnormal [Recovering/Resolving]

NARRATIVE: CASE EVENT DATE: 20170601
